FAERS Safety Report 17835073 (Version 1)
Quarter: 2020Q2

REPORT INFORMATION
  Report Type: Spontaneous
  Country: BR (occurrence: BR)
  Receive Date: 20200528
  Receipt Date: 20200528
  Transmission Date: 20200714
  Serious: Yes (Other)
  Sender: FDA-Public Use
  Company Number: BR-PFIZER INC-2020204798

PATIENT
  Age: 65 Year
  Sex: Male
  Weight: 76.9 kg

DRUGS (17)
  1. NORADRENALINE [NOREPINEPHRINE] [Concomitant]
     Active Substance: NOREPINEPHRINE
     Indication: SEDATION
     Dosage: 16 MG, AS NEEDED
     Route: 042
     Dates: start: 20200411, end: 20200418
  2. REUQUINOL [Interacting]
     Active Substance: HYDROXYCHLOROQUINE SULFATE
     Dosage: 400 MG, 1X/DAY
     Route: 048
     Dates: start: 20200413, end: 20200414
  3. OSELTAMIVIR [OSELTAMIVIR PHOSPHATE] [Concomitant]
     Dosage: UNK UNK, 2X/DAY
     Dates: start: 20200411
  4. LASIX [Concomitant]
     Active Substance: FUROSEMIDE
     Dosage: 20 MG, AS NEEDED
     Route: 042
     Dates: start: 20200413, end: 20200414
  5. ZINFORO [Concomitant]
     Active Substance: CEFTAROLINE FOSAMIL
     Dosage: 600 MG, 2X/DAY
     Route: 042
     Dates: start: 20200412, end: 20200418
  6. BROMOPRIDA [Concomitant]
     Dosage: 10 MG, 3X/DAY
     Route: 042
     Dates: start: 20200414, end: 20200427
  7. CLEXANE [Concomitant]
     Active Substance: ENOXAPARIN SODIUM
     Dosage: 80 MG, 2X/DAY
     Route: 058
     Dates: start: 20200411, end: 20200420
  8. LACTULONA [Concomitant]
     Dosage: 20 ML, 3X/DAY
     Route: 049
     Dates: start: 20200414, end: 20200421
  9. NUJOL [Concomitant]
     Dosage: 20 ML, 3X/DAY
     Route: 049
     Dates: start: 20200414, end: 20200420
  10. ZITROMAX [Suspect]
     Active Substance: AZITHROMYCIN
     Indication: COVID-19
     Dosage: 500 MG, 1X/DAY
     Route: 042
     Dates: start: 20200411, end: 20200417
  11. CEFTRIAXONE. [Concomitant]
     Active Substance: CEFTRIAXONE
     Dosage: UNK
     Dates: start: 20200411
  12. AMIODARONE HCL [Concomitant]
     Active Substance: AMIODARONE HYDROCHLORIDE
     Dosage: 900 MG, AS NEEDED
     Route: 042
     Dates: start: 20200411, end: 20200425
  13. DORMIRE [MIDAZOLAM HYDROCHLORIDE] [Concomitant]
     Dosage: 100 MG, AS NEEDED
     Route: 042
     Dates: start: 20200411, end: 20200419
  14. NEXIUM [Concomitant]
     Active Substance: ESOMEPRAZOLE MAGNESIUM
     Dosage: 20 MG, 1X/DAY
     Route: 049
     Dates: start: 20200413, end: 20200419
  15. REUQUINOL [Interacting]
     Active Substance: HYDROXYCHLOROQUINE SULFATE
     Indication: COVID-19
     Dosage: 400 MG, 2X/DAY
     Route: 048
     Dates: start: 20200412, end: 20200412
  16. FENTANEST [FENTANYL CITRATE] [Concomitant]
     Dosage: 2500 UG, AS NEEDED
     Route: 042
     Dates: start: 20200411, end: 20200419
  17. LUFTAL MAX [Concomitant]
     Dosage: 40 DROP, 3X/DAY
     Route: 049
     Dates: start: 20200414, end: 20200424

REACTIONS (9)
  - Gastrointestinal haemorrhage [Recovered/Resolved]
  - Off label use [Unknown]
  - Drug interaction [Recovered/Resolved]
  - Product use issue [Unknown]
  - Product use in unapproved indication [Unknown]
  - Fibrin D dimer increased [Unknown]
  - Oxygen saturation decreased [Unknown]
  - Electrocardiogram QT prolonged [Recovered/Resolved]
  - Haematochezia [Recovered/Resolved]

NARRATIVE: CASE EVENT DATE: 20200411
